FAERS Safety Report 11773954 (Version 1)
Quarter: 2015Q4

REPORT INFORMATION
  Report Type: Spontaneous
  Country: None (occurrence: US)
  Receive Date: 20151124
  Receipt Date: 20151124
  Transmission Date: 20160304
  Serious: No
  Sender: FDA-Public Use
  Company Number: US-PERNIX THERAPEUTICS-2015PT000129

PATIENT

DRUGS (3)
  1. ZOHYDRO [Suspect]
     Active Substance: HYDROCODONE BITARTRATE
     Indication: MUSCULOSKELETAL PAIN
     Dosage: 20 MG, TWICE DAILY
     Route: 048
  2. ZOHYDRO [Suspect]
     Active Substance: HYDROCODONE BITARTRATE
     Indication: ROTATOR CUFF REPAIR
     Dosage: 30 MG, TWICE DAILY
     Route: 048
  3. AMBIEN [Concomitant]
     Active Substance: ZOLPIDEM TARTRATE
     Indication: SLEEP DISORDER
     Dosage: UNK

REACTIONS (4)
  - Drug ineffective [Unknown]
  - Drug dose omission [None]
  - Therapy change [None]
  - Product distribution issue [None]

NARRATIVE: CASE EVENT DATE: 201507
